FAERS Safety Report 8590876-9 (Version None)
Quarter: 2012Q3

REPORT INFORMATION
  Report Type: 
  Country: None (occurrence: None)
  Receive Date: 20120813
  Receipt Date: 20120604
  Transmission Date: 20120928
  Serious: Yes (Other)
  Sender: FDA-Public Use
  Company Number: JP-009507513-1208JPN005237

PATIENT

DRUGS (13)
  1. REBETOL [Suspect]
     Route: 048
     Dates: start: 20120525
  2. BISOPROLOL FUMARATE [Concomitant]
     Route: 048
  3. ALPRAZOLAM [Concomitant]
     Indication: PROPHYLAXIS
     Route: 048
  4. PEG-INTRON [Suspect]
     Indication: HEPATITIS C
     Dosage: 1.0MCG/KG/WEEK
     Route: 058
     Dates: start: 20120411
  5. REBETOL [Suspect]
     Indication: HEPATITIS C
     Route: 048
     Dates: start: 20120411
  6. TELAVIC [Suspect]
     Indication: HEPATITIS C
     Route: 048
     Dates: start: 20120411, end: 20120518
  7. FEBURIC [Concomitant]
     Route: 048
  8. PEG-INTRON [Suspect]
     Dosage: 70MCG/KG/WEEK
     Route: 058
     Dates: end: 20120529
  9. FAMOTIDINE [Concomitant]
     Indication: PROPHYLAXIS
     Route: 048
  10. ATELEC [Concomitant]
     Route: 048
  11. PEG-INTRON [Suspect]
     Dosage: 1.5MCG/KG/WEEK
     Route: 058
     Dates: start: 20120605
  12. REBETOL [Suspect]
     Route: 048
     Dates: start: 20120425, end: 20120524
  13. LEVOTHYROXINE SODIUM [Concomitant]
     Dosage: 25 ONCE DAILY
     Route: 048

REACTIONS (1)
  - ERYTHEMA [None]
